FAERS Safety Report 5619347-6 (Version None)
Quarter: 2008Q1

REPORT INFORMATION
  Report Type: 
  Country: None (occurrence: None)
  Receive Date: 20080114
  Receipt Date: 20061215
  Transmission Date: 20080703
  Serious: Yes (Hospitalization)
  Sender: FDA-Public Use
  Company Number: A03200701890

PATIENT
  Age: 47 Year
  Sex: Female

DRUGS (4)
  1. PLAVIX [Suspect]
     Dosage: ORAL
     Route: 048
  2. LASIX [Suspect]
     Dosage: ORAL
     Route: 048
  3. EZETIMIBE/SIMVASTATIN [Concomitant]
  4. SPIRONOLACTONE [Concomitant]

REACTIONS (4)
  - ANGINA UNSTABLE [None]
  - CORONARY ARTERY OCCLUSION [None]
  - MICROANGIOPATHY [None]
  - MYOCARDIAL INFARCTION [None]
